FAERS Safety Report 10531065 (Version 1)
Quarter: 2014Q4

REPORT INFORMATION
  Report Type: Spontaneous
  Country: US (occurrence: US)
  Receive Date: 20141021
  Receipt Date: 20141021
  Transmission Date: 20150529
  Serious: No
  Sender: FDA-Public Use
  Company Number: US-BAYER-2014-152803

PATIENT
  Age: 21 Year
  Sex: Female

DRUGS (1)
  1. MIRENA [Suspect]
     Active Substance: LEVONORGESTREL
     Indication: CONTRACEPTION
     Dosage: 20 MCG/24HR, CONT
     Route: 015
     Dates: start: 2014

REACTIONS (6)
  - Hypomenorrhoea [None]
  - Metrorrhagia [None]
  - Abdominal pain [None]
  - Eating disorder [None]
  - Feeling abnormal [None]
  - Vomiting in pregnancy [None]

NARRATIVE: CASE EVENT DATE: 2014
